FAERS Safety Report 16937253 (Version 2)
Quarter: 2020Q2

REPORT INFORMATION
  Report Type: Spontaneous
  Country: FR (occurrence: FR)
  Receive Date: 20191019
  Receipt Date: 20200615
  Transmission Date: 20200713
  Serious: Yes (Hospitalization, Other)
  Sender: FDA-Public Use
  Company Number: FR-AXELLIA-002753

PATIENT
  Age: 3 Year
  Sex: Male

DRUGS (6)
  1. VANCOMYCIN [Suspect]
     Active Substance: VANCOMYCIN
     Indication: MENINGISM
     Dosage: 60 MG/KG DAILY; DOSE WAS INCREASED ON DAY 3
  2. VANCOMYCIN [Suspect]
     Active Substance: VANCOMYCIN
     Indication: OTITIS MEDIA ACUTE
     Dosage: 40 MG/KG DAILY;
  3. CEFOTAXIME [Suspect]
     Active Substance: CEFOTAXIME SODIUM
     Indication: OTITIS MEDIA ACUTE
     Dosage: 200 MG/KG DAILY;
  4. AMOXICILLIN. [Suspect]
     Active Substance: AMOXICILLIN
     Indication: TYMPANIC MEMBRANE PERFORATION
  5. CEFOTAXIME [Suspect]
     Active Substance: CEFOTAXIME SODIUM
     Indication: MENINGISM
     Dosage: 300 MG/KG DAILY; DOSE WAS INCREASED ON DAY 3 FOR 11 DAYS
  6. AMOXICILLIN. [Suspect]
     Active Substance: AMOXICILLIN
     Indication: OTITIS MEDIA ACUTE
     Dosage: 80 MG/KG DAILY

REACTIONS (6)
  - Meningism [Recovered/Resolved]
  - Photophobia [Unknown]
  - Pyrexia [Recovered/Resolved]
  - Leukostasis syndrome [Unknown]
  - Inflammatory marker increased [Recovered/Resolved]
  - Headache [Unknown]
